FAERS Safety Report 8832269 (Version 1)
Quarter: 2012Q4

REPORT INFORMATION
  Report Type: Report from Study
  Country: US (occurrence: US)
  Receive Date: 20121009
  Receipt Date: 20121009
  Transmission Date: 20130627
  Serious: Yes (Hospitalization)
  Sender: FDA-Public Use
  Company Number: US-ABBOTT-12P-163-0990788-00

PATIENT
  Sex: Male

DRUGS (3)
  1. HUMIRA PEN [Suspect]
     Indication: CROHN^S DISEASE
     Route: 058
     Dates: start: 201205
  2. MERCAPTOPURINE [Concomitant]
     Indication: PRODUCT USED FOR UNKNOWN INDICATION
  3. LORATADINE [Concomitant]
     Indication: HYPERSENSITIVITY

REACTIONS (1)
  - Hospitalisation [Unknown]
